FAERS Safety Report 5389564-1 (Version None)
Quarter: 2007Q3

REPORT INFORMATION
  Report Type: 
  Country: None (occurrence: None)
  Receive Date: 20070717
  Receipt Date: 20070703
  Transmission Date: 20080115
  Serious: Yes (Death, Hospitalization)
  Sender: FDA-Public Use
  Company Number: FR-GENENTECH-244552

PATIENT
  Age: 75 Year
  Sex: Female

DRUGS (7)
  1. HERCEPTIN [Suspect]
     Indication: BREAST CANCER
     Dosage: 9 MG/KG, UNK
     Route: 042
     Dates: start: 20050905, end: 20060808
  2. TAXOL [Suspect]
     Indication: BREAST CANCER
     Dosage: 80 MG/M2, UNK
     Route: 042
     Dates: start: 20050905, end: 20060109
  3. HYDREA [Suspect]
     Indication: THROMBOCYTOPENIA
     Route: 048
     Dates: start: 19950615, end: 19991130
  4. CARBOPLATIN [Concomitant]
     Indication: DRUG USE FOR UNKNOWN INDICATION
     Dates: start: 19090101, end: 20060109
  5. ARIMIDEX [Concomitant]
     Indication: DRUG USE FOR UNKNOWN INDICATION
     Dates: start: 20060414
  6. ANAGRELIDE HCL [Concomitant]
     Indication: DRUG USE FOR UNKNOWN INDICATION
  7. VERCYTE [Concomitant]
     Indication: DRUG USE FOR UNKNOWN INDICATION

REACTIONS (1)
  - ACUTE LEUKAEMIA [None]
